FAERS Safety Report 6466107-2 (Version None)
Quarter: 2009Q4

REPORT INFORMATION
  Report Type: 
  Country: None (occurrence: None)
  Receive Date: 20091127
  Receipt Date: 20091120
  Transmission Date: 20100525
  Serious: Yes (Other)
  Sender: FDA-Public Use
  Company Number: 2009SP003077

PATIENT
  Age: 42 Year
  Sex: Male
  Weight: 124.3 kg

DRUGS (5)
  1. LUNESTA [Suspect]
     Indication: INSOMNIA
     Dosage: ORAL
     Route: 048
     Dates: start: 20090801, end: 20091001
  2. ACTOS [Concomitant]
  3. NORVASC [Concomitant]
  4. BENICAR [Concomitant]
  5. PREV MEDS [Concomitant]

REACTIONS (3)
  - PSYCHOTIC DISORDER [None]
  - SUICIDAL IDEATION [None]
  - SUICIDE ATTEMPT [None]
